FAERS Safety Report 24868849 (Version 1)
Quarter: 2025Q1

REPORT INFORMATION
  Report Type: Spontaneous
  Country: US (occurrence: None)
  Receive Date: 20250117
  Receipt Date: 20250117
  Transmission Date: 20250409
  Serious: Yes (Disabling)
  Sender: FDA-CTU
  Company Number: None

PATIENT
  Age: 22 Day
  Sex: Male
  Weight: 3.15 kg

DRUGS (1)
  1. BEYFORTUS [Suspect]
     Active Substance: NIRSEVIMAB-ALIP
     Indication: Infant
     Route: 030
     Dates: start: 20241230, end: 20241230

REACTIONS (3)
  - Hypothermia [None]
  - Dyskinesia [None]
  - Intraventricular haemorrhage [None]

NARRATIVE: CASE EVENT DATE: 20250102
